FAERS Safety Report 17010586 (Version 1)
Quarter: 2019Q4

REPORT INFORMATION
  Report Type: Spontaneous
  Country: US (occurrence: US)
  Receive Date: 20191001
  Receipt Date: 20191001
  Transmission Date: 20200122
  Serious: Yes (Other)
  Sender: FDA-Public Use
  Company Number: None

PATIENT
  Age: 34 Year
  Sex: Male
  Weight: 102.06 kg

DRUGS (1)
  1. TADALAFIL 20MG [Suspect]
     Active Substance: TADALAFIL
     Indication: ERECTILE DYSFUNCTION
     Dosage: 1 X DAILY PRN.
     Dates: start: 201909

REACTIONS (6)
  - Flushing [None]
  - Nausea [None]
  - Abdominal pain upper [None]
  - Diarrhoea [None]
  - Therapeutic product effect decreased [None]
  - Headache [None]

NARRATIVE: CASE EVENT DATE: 20190903
